FAERS Safety Report 25400074 (Version 1)
Quarter: 2025Q2

REPORT INFORMATION
  Report Type: Report from Study
  Country: RO (occurrence: RO)
  Receive Date: 20250605
  Receipt Date: 20250605
  Transmission Date: 20250716
  Serious: Yes (Disabling)
  Sender: ABBVIE
  Company Number: RO-ABBVIE-6305791

PATIENT
  Age: 62 Year
  Sex: Male

DRUGS (2)
  1. CARBIDOPA\LEVODOPA [Suspect]
     Active Substance: CARBIDOPA\LEVODOPA
     Indication: Parkinson^s disease
     Route: 050
     Dates: start: 20200910
  2. CARBIDOPA\LEVODOPA [Suspect]
     Active Substance: CARBIDOPA\LEVODOPA

REACTIONS (4)
  - Bedridden [Unknown]
  - Condition aggravated [Unknown]
  - Urinary incontinence [Unknown]
  - Decubitus ulcer [Not Recovered/Not Resolved]
